FAERS Safety Report 20396768 (Version 2)
Quarter: 2022Q1

REPORT INFORMATION
  Report Type: Spontaneous
  Country: US (occurrence: US)
  Receive Date: 20220131
  Receipt Date: 20220201
  Transmission Date: 20220423
  Serious: No
  Sender: FDA-Public Use
  Company Number: US-ABBVIE-21K-163-3843889-00

PATIENT
  Age: 52 Year
  Sex: Female
  Weight: 108.96 kg

DRUGS (5)
  1. HUMIRA [Suspect]
     Active Substance: ADALIMUMAB
     Indication: Hidradenitis
     Route: 058
  2. AMLODIPINE [Concomitant]
     Active Substance: AMLODIPINE BESYLATE
     Indication: Hypertension
  3. HYDROCHLOROTHIAZIDE [Concomitant]
     Active Substance: HYDROCHLOROTHIAZIDE
     Indication: Diuretic therapy
  4. COVID-19 VACCINE [Concomitant]
     Indication: COVID-19 immunisation
     Dosage: PFIZER
     Route: 030
     Dates: start: 20201230, end: 20201230
  5. COVID-19 VACCINE [Concomitant]
     Dosage: PFIZER
     Route: 030
     Dates: start: 20210120, end: 20210120

REACTIONS (6)
  - Joint swelling [Not Recovered/Not Resolved]
  - Cough [Recovered/Resolved]
  - Arthralgia [Not Recovered/Not Resolved]
  - Pain in extremity [Not Recovered/Not Resolved]
  - Product administration error [Unknown]
  - Product storage error [Unknown]

NARRATIVE: CASE EVENT DATE: 20210201
